FAERS Safety Report 5231611-1 (Version None)
Quarter: 2007Q1

REPORT INFORMATION
  Report Type: 
  Country: None (occurrence: None)
  Receive Date: 20061201
  Receipt Date: 20060915
  Transmission Date: 20070707
  Serious: No
  Sender: FDA-Public Use
  Company Number: 2006PV021324

PATIENT
  Sex: Male

DRUGS (1)
  1. BYETTA INJECTION (0.25 MG/ML) [Suspect]
     Indication: DRUG USE FOR UNKNOWN INDICATION
     Dosage: SC
     Route: 058

REACTIONS (1)
  - WEIGHT DECREASED [None]
